FAERS Safety Report 15681705 (Version 1)
Quarter: 2018Q4

REPORT INFORMATION
  Report Type: Spontaneous
  Country: AU (occurrence: AU)
  Receive Date: 20181203
  Receipt Date: 20181203
  Transmission Date: 20190205
  Serious: Yes (Hospitalization, Other)
  Sender: FDA-Public Use
  Company Number: AU-TEVA-2018-AU-983748

PATIENT
  Sex: Male

DRUGS (6)
  1. CLOZARIL [Suspect]
     Active Substance: CLOZAPINE
     Dosage: UNKNOWN FREQUENCY
     Route: 048
     Dates: start: 20180813, end: 2018
  2. AMISULPRIDE [Suspect]
     Active Substance: AMISULPRIDE
     Indication: MANIA
     Route: 065
  3. QUETIAPINE. [Suspect]
     Active Substance: QUETIAPINE
     Dosage: 550 MILLIGRAM DAILY;
     Route: 048
  4. VALPROATE SODIUM. [Suspect]
     Active Substance: VALPROATE SODIUM
     Indication: PRODUCT USED FOR UNKNOWN INDICATION
     Dosage: 2 GRAM DAILY;
     Route: 065
  5. CLOZARIL [Suspect]
     Active Substance: CLOZAPINE
     Indication: SCHIZOPHRENIA
     Dosage: UNKNOWN FREQUENCY
     Route: 048
     Dates: start: 19990927, end: 20180703
  6. HALOPERIDOL. [Suspect]
     Active Substance: HALOPERIDOL
     Indication: AGITATION
     Route: 065

REACTIONS (15)
  - Autonomic neuropathy [Unknown]
  - Monocyte count increased [Recovering/Resolving]
  - Agitation [Unknown]
  - Neutropenia [Not Recovered/Not Resolved]
  - Psychotic symptom [Unknown]
  - Lymphocyte count increased [Recovering/Resolving]
  - Drug ineffective [Unknown]
  - Neuroleptic malignant syndrome [Recovered/Resolved]
  - Leukopenia [Recovered/Resolved]
  - Mania [Unknown]
  - Antipsychotic drug level below therapeutic [Unknown]
  - Red blood cell count decreased [Recovered/Resolved]
  - Epstein-Barr virus infection [Unknown]
  - Platelet count increased [Recovered/Resolved]
  - Haemoglobin decreased [Recovered/Resolved]
